FAERS Safety Report 11857696 (Version 1)
Quarter: 2015Q4

REPORT INFORMATION
  Report Type: Spontaneous
  Country: US (occurrence: None)
  Receive Date: 20151221
  Receipt Date: 20151221
  Transmission Date: 20160305
  Serious: No
  Sender: FDA-Public Use
  Company Number: None

PATIENT
  Age: 35 Year
  Sex: Female
  Weight: 65.77 kg

DRUGS (2)
  1. NUVARING [Concomitant]
     Active Substance: ETHINYL ESTRADIOL\ETONOGESTREL
  2. MICONAZOLE NITRATE 1200MG WALGREENS [Suspect]
     Active Substance: MICONAZOLE NITRATE
     Indication: FUNGAL INFECTION
     Dates: start: 20151216, end: 20151216

REACTIONS (4)
  - Vulvovaginal swelling [None]
  - Hypersensitivity [None]
  - Vulvovaginal burning sensation [None]
  - Vaginal mucosal blistering [None]

NARRATIVE: CASE EVENT DATE: 20151219
